FAERS Safety Report 6217589-2 (Version None)
Quarter: 2009Q2

REPORT INFORMATION
  Report Type: 
  Country: None (occurrence: None)
  Receive Date: 20090608
  Receipt Date: 20090316
  Transmission Date: 20091009
  Serious: No
  Sender: FDA-Public Use
  Company Number: A0773624A

PATIENT
  Age: 56 Year
  Sex: Female

DRUGS (7)
  1. WELLBUTRIN XL [Suspect]
     Indication: DEPRESSION
     Dosage: 450MG PER DAY
     Route: 048
     Dates: start: 20060101
  2. ACIPHEX [Concomitant]
  3. ATENOLOL [Concomitant]
  4. CRESTOR [Concomitant]
  5. CELEBREX [Concomitant]
  6. DYAZIDE [Concomitant]
  7. SYNTHROID [Concomitant]

REACTIONS (1)
  - NIGHTMARE [None]
